FAERS Safety Report 14578533 (Version 1)
Quarter: 2018Q1

REPORT INFORMATION
  Report Type: Report from Study
  Country: GB (occurrence: GB)
  Receive Date: 20180227
  Receipt Date: 20180227
  Transmission Date: 20180509
  Serious: Yes (Hospitalization)
  Sender: FDA-Public Use
  Company Number: GB-ASTRAZENECA-2017SF16345

PATIENT
  Age: 19875 Day
  Sex: Male

DRUGS (6)
  1. AZD9150 [Suspect]
     Active Substance: INVESTIGATIONAL PRODUCT
     Indication: SQUAMOUS CELL CARCINOMA OF HEAD AND NECK
     Dosage: WEEKLY
     Route: 042
     Dates: start: 20171009
  2. FERROUS SULFATE. [Concomitant]
     Active Substance: FERROUS SULFATE
     Dosage: 200 MG
     Route: 048
  3. MEDI4736 [Suspect]
     Active Substance: DURVALUMAB
     Indication: SQUAMOUS CELL CARCINOMA OF HEAD AND NECK
     Dosage: WEEKLY
     Route: 042
     Dates: start: 20171009
  4. GABAPENTIN. [Concomitant]
     Active Substance: GABAPENTIN
     Dosage: AS REQUIRED
     Route: 058
  5. LEVOTHYROXINE. [Concomitant]
     Active Substance: LEVOTHYROXINE
     Dosage: 30 MG
     Route: 048
  6. LANSOPRAZOLE. [Concomitant]
     Active Substance: LANSOPRAZOLE
     Dosage: 100 MG
     Route: 048

REACTIONS (3)
  - Face oedema [Recovered/Resolved]
  - Superior vena cava occlusion [Recovered/Resolved]
  - Tumour flare [Recovered/Resolved]

NARRATIVE: CASE EVENT DATE: 20171110
